FAERS Safety Report 22383031 (Version 1)
Quarter: 2023Q2

REPORT INFORMATION
  Report Type: Spontaneous
  Country: CN (occurrence: CN)
  Receive Date: 20230530
  Receipt Date: 20230530
  Transmission Date: 20230722
  Serious: Yes (Other)
  Sender: FDA-Public Use
  Company Number: CN-PFIZER INC-202300199192

PATIENT

DRUGS (1)
  1. XALKORI [Suspect]
     Active Substance: CRIZOTINIB
     Dosage: 250 MG, 1X/DAY
     Dates: start: 202303

REACTIONS (10)
  - Hepatic enzyme increased [Unknown]
  - Blood bilirubin increased [Unknown]
  - Bilirubin conjugated [Unknown]
  - AST/ALT ratio abnormal [Unknown]
  - Albumin globulin ratio decreased [Unknown]
  - Alpha hydroxybutyrate dehydrogenase increased [Unknown]
  - Blood creatine phosphokinase decreased [Unknown]
  - Blood creatinine decreased [Unknown]
  - Blood uric acid decreased [Unknown]
  - Blood calcium decreased [Unknown]
